FAERS Safety Report 8803640 (Version 5)
Quarter: 2013Q1

REPORT INFORMATION
  Report Type: Report from Study
  Country: RU (occurrence: RU)
  Receive Date: 20120924
  Receipt Date: 20130212
  Transmission Date: 20140127
  Serious: Yes (Hospitalization)
  Sender: FDA-Public Use
  Company Number: RU-009507513-1209RUS005148

PATIENT
  Age: 17 Year
  Sex: Male
  Weight: 81.2 kg

DRUGS (1)
  1. ASENAPINE MALEATE-SCHIZOPHRENIA [Suspect]
     Indication: SCHIZOPHRENIA
     Dosage: 2.5 MG, BID
     Route: 060
     Dates: start: 20120813, end: 20120910

REACTIONS (1)
  - Schizophrenia [Recovering/Resolving]
